FAERS Safety Report 8334185-1 (Version None)
Quarter: 2012Q1

REPORT INFORMATION
  Report Type: 
  Country: None (occurrence: None)
  Receive Date: 20120329
  Receipt Date: 20120223
  Transmission Date: 20120608
  Serious: Yes (Other)
  Sender: FDA-Public Use
  Company Number: WAES 1102USA03361

PATIENT
  Age: 59 Year
  Sex: Female
  Weight: 94.8018 kg

DRUGS (3)
  1. ALOXI [Concomitant]
  2. FOSAPREPITANT DIMEGLUMINE [Suspect]
     Indication: PROPHYLAXIS
     Dosage: 150 MG/1X/IV
     Route: 042
     Dates: start: 20110326, end: 20110326
  3. DECADRON [Concomitant]

REACTIONS (4)
  - INFUSION SITE PHLEBITIS [None]
  - DYSPNOEA [None]
  - FLUSHING [None]
  - ABDOMINAL PAIN UPPER [None]
